FAERS Safety Report 5877698-4 (Version None)
Quarter: 2008Q3

REPORT INFORMATION
  Report Type: 
  Country: None (occurrence: None)
  Receive Date: 20080911
  Receipt Date: 20080904
  Transmission Date: 20090109
  Serious: Yes (Other)
  Sender: FDA-Public Use
  Company Number: KR-JNJFOC-20080901567

PATIENT
  Age: 60 Year
  Sex: Female

DRUGS (6)
  1. GALANTAMINE HYDROBROMIDE [Suspect]
     Route: 048
  2. GALANTAMINE HYDROBROMIDE [Suspect]
     Route: 048
  3. GALANTAMINE HYDROBROMIDE [Suspect]
     Indication: DEMENTIA
     Route: 048
  4. LAXATIVE [Concomitant]
     Indication: DRUG USE FOR UNKNOWN INDICATION
  5. ANTI-DEPRESSANT [Concomitant]
     Indication: ANTIDEPRESSANT THERAPY
     Route: 048
  6. CHOLESTEROL MEDICATION [Concomitant]
     Indication: HYPERLIPIDAEMIA
     Route: 048

REACTIONS (3)
  - AGGRESSION [None]
  - INAPPROPRIATE SCHEDULE OF DRUG ADMINISTRATION [None]
  - INSOMNIA [None]
